APPROVED DRUG PRODUCT: ULTACAN FORTE
Active Ingredient: ARTICAINE HYDROCHLORIDE; EPINEPHRINE BITARTRATE
Strength: 4%;EQ 0.017MG BASE/1.7ML (4%; EQ 0.01MG BASE/ML)
Dosage Form/Route: INJECTABLE;INJECTION
Application: A201750 | Product #001
Applicant: HANSAMED INC
Approved: Jul 11, 2017 | RLD: No | RS: No | Type: DISCN